FAERS Safety Report 20540409 (Version 2)
Quarter: 2022Q3

REPORT INFORMATION
  Report Type: Spontaneous
  Country: DE (occurrence: DE)
  Receive Date: 20220302
  Receipt Date: 20220801
  Transmission Date: 20221026
  Serious: Yes (Other)
  Sender: FDA-Public Use
  Company Number: DE-PFIZER INC-202200292723

PATIENT
  Age: 30 Year
  Sex: Female

DRUGS (2)
  1. VORICONAZOLE [Suspect]
     Active Substance: VORICONAZOLE
     Indication: Bronchopulmonary aspergillosis
     Dosage: UNK
  2. VORICONAZOLE [Suspect]
     Active Substance: VORICONAZOLE
     Indication: Cerebral aspergillosis

REACTIONS (7)
  - Synovitis [Recovered/Resolved]
  - Periostitis [Recovered/Resolved]
  - Polyarthritis [Recovered/Resolved]
  - Enthesopathy [Recovered/Resolved]
  - Fluoride increased [Recovered/Resolved]
  - Blood alkaline phosphatase increased [Recovered/Resolved]
  - Toxicity to various agents [Recovered/Resolved]
